FAERS Safety Report 14460727 (Version 1)
Quarter: 2018Q1

REPORT INFORMATION
  Report Type: Spontaneous
  Country: US (occurrence: US)
  Receive Date: 20180130
  Receipt Date: 20180130
  Transmission Date: 20180509
  Serious: No
  Sender: FDA-Public Use
  Company Number: None

PATIENT
  Age: 88 Year
  Sex: Female
  Weight: 58.97 kg

DRUGS (6)
  1. MYRBETRIQ [Suspect]
     Active Substance: MIRABEGRON
     Indication: INCONTINENCE
     Route: 048
     Dates: start: 20170707, end: 2017
  2. AMITRIPTHYLINE HCL (ELAVIL) [Concomitant]
  3. CALCIUM [Concomitant]
     Active Substance: CALCIUM
  4. CENTRIUM - MULTIVITAMIN [Concomitant]
  5. BIOTIN [Concomitant]
     Active Substance: BIOTIN
  6. VITAMIN D3 [Concomitant]
     Active Substance: CHOLECALCIFEROL

REACTIONS (4)
  - Sleep disorder [None]
  - Rash [None]
  - Alopecia [None]
  - Eye infection [None]

NARRATIVE: CASE EVENT DATE: 20170707
